FAERS Safety Report 17054086 (Version 2)
Quarter: 2019Q4

REPORT INFORMATION
  Report Type: Spontaneous
  Country: US (occurrence: US)
  Receive Date: 20191120
  Receipt Date: 20191125
  Transmission Date: 20200122
  Serious: Yes (Other)
  Sender: FDA-Public Use
  Company Number: US-PFIZER INC-2019495986

PATIENT
  Age: 29 Year
  Sex: Male
  Weight: 100.2 kg

DRUGS (8)
  1. DILANTIN [Suspect]
     Active Substance: PHENYTOIN
     Dosage: 390 MG, UNK (THREE 100MG AND THREE 30MG PILLS)
  2. DILANTIN [Suspect]
     Active Substance: PHENYTOIN
     Dosage: 60 MG, DAILY(START WITH 2, 30MG CAPSULES)
  3. PHENOBARBITAL. [Concomitant]
     Active Substance: PHENOBARBITAL
     Indication: SEIZURE
     Dosage: 32.4 MG, 4X/DAY
     Dates: start: 1983
  4. DILANTIN [Suspect]
     Active Substance: PHENYTOIN
     Dosage: 330 MG, UNK (ONE WEEK AGO TO BRING THE LEVELS DOWN SOME.)
  5. DILANTIN [Suspect]
     Active Substance: PHENYTOIN
     Indication: SEIZURE
     Dosage: 400 MG, UNK (FOUR 100 MG PILLS)
  6. DILANTIN [Suspect]
     Active Substance: PHENYTOIN
     Dosage: 300 MG, UNK (THREE 100 MG)
  7. DILANTIN [Suspect]
     Active Substance: PHENYTOIN
     Dosage: 300 MG, DAILY(100 MG, 1 BY MOUTH EVERY MORNING AND 2 AT BEDTIME)
     Route: 048
     Dates: start: 1983
  8. DILANTIN [Suspect]
     Active Substance: PHENYTOIN
     Dosage: 90 MG, 1X/DAY(30 MG, 3 BY MOUTH EVERY MORNING)
     Route: 048

REACTIONS (6)
  - Stress [Not Recovered/Not Resolved]
  - Neuropathy peripheral [Recovering/Resolving]
  - Hypoaesthesia [Not Recovered/Not Resolved]
  - Depression [Not Recovered/Not Resolved]
  - Anxiety [Not Recovered/Not Resolved]
  - Intentional product use issue [Unknown]

NARRATIVE: CASE EVENT DATE: 1983
